FAERS Safety Report 10004296 (Version 1)
Quarter: 2014Q1

REPORT INFORMATION
  Report Type: Spontaneous
  Country: DE (occurrence: DE)
  Receive Date: 20140312
  Receipt Date: 20140312
  Transmission Date: 20141002
  Serious: Yes (Other)
  Sender: FDA-Public Use
  Company Number: DE-WATSON-2013-25133

PATIENT
  Age: 48 Year
  Sex: Male

DRUGS (2)
  1. PRAMIPEXOLE [Suspect]
     Indication: PARKINSON^S DISEASE
     Dosage: 1.57 MG, UNKNOWN
     Route: 048
     Dates: start: 201204, end: 20130423
  2. AZILECT [Concomitant]
     Indication: PARKINSON^S DISEASE
     Route: 048
     Dates: start: 201204, end: 20130423

REACTIONS (3)
  - Dyspnoea [Recovering/Resolving]
  - Oedema peripheral [Recovering/Resolving]
  - Right ventricular failure [Recovering/Resolving]
